FAERS Safety Report 18083488 (Version 1)
Quarter: 2020Q3

REPORT INFORMATION
  Report Type: Spontaneous
  Country: US (occurrence: US)
  Receive Date: 20200728
  Receipt Date: 20200728
  Transmission Date: 20201103
  Serious: No
  Sender: FDA-Public Use
  Company Number: US-PERRIGO-20US000330

PATIENT
  Age: 82 Year
  Sex: Female
  Weight: 49.89 kg

DRUGS (4)
  1. VITAMIN D3 [Suspect]
     Active Substance: CHOLECALCIFEROL
     Indication: FATIGUE
     Dosage: UNKNOWN, UNKNOWN
     Route: 048
     Dates: start: 20191231, end: 20200105
  2. ESTRADIOL. [Concomitant]
     Active Substance: ESTRADIOL
     Indication: MENOPAUSAL SYMPTOMS
     Dosage: 1 MG
     Route: 065
     Dates: start: 1970
  3. ARMOUR THYROID [Suspect]
     Active Substance: THYROID, PORCINE
     Indication: HYPOTHYROIDISM
     Dosage: 75 MCG, UNKNOWN
     Route: 048
     Dates: end: 20200106
  4. MINOXIDIL. [Suspect]
     Active Substance: MINOXIDIL
     Indication: ALOPECIA
     Dosage: 0.5 ML, EVERY 4 TO 5 DAYS
     Route: 061
     Dates: start: 20191208, end: 20200105

REACTIONS (3)
  - Palpitations [Not Recovered/Not Resolved]
  - Off label use [Recovered/Resolved]
  - Expired product administered [Unknown]

NARRATIVE: CASE EVENT DATE: 201912
